FAERS Safety Report 8051057-0 (Version None)
Quarter: 2012Q1

REPORT INFORMATION
  Report Type: 
  Country: None (occurrence: None)
  Receive Date: 20120117
  Receipt Date: 20120111
  Transmission Date: 20120608
  Serious: Yes (Death)
  Sender: FDA-Public Use
  Company Number: PHHY2012IT003060

PATIENT
  Age: 50 Year
  Sex: Male

DRUGS (7)
  1. CYTARABINE [Concomitant]
     Dosage: 100 MG/M2, BID ON DAYS 1-7
  2. CYCLOSPORINE [Suspect]
     Dosage: 7.5 MG/KG ON DAY 10
  3. CYTARABINE [Concomitant]
     Dosage: 03 G/M^2 BD, ON DAYS 1, 2, 8, AND 9
  4. IDARUBICIN HCL [Concomitant]
     Dosage: 12 MG/M2, ON DAYS 1-3
  5. IDARUBICIN HCL [Concomitant]
     Dosage: 17.5 MG/M2, ON DAYS 03 AND 10
  6. CYCLOSPORINE [Suspect]
     Indication: ACUTE MYELOID LEUKAEMIA
     Dosage: 6 ML/KG, ON DAY 03
  7. ETOPOSIDE [Concomitant]
     Dosage: 100 MG/M2, ON DAYS 1-5.

REACTIONS (1)
  - ACUTE MYELOID LEUKAEMIA [None]
